FAERS Safety Report 20107282 (Version 1)
Quarter: 2021Q4

REPORT INFORMATION
  Report Type: Spontaneous
  Country: US (occurrence: US)
  Receive Date: 20211124
  Receipt Date: 20211124
  Transmission Date: 20220304
  Serious: No
  Sender: FDA-Public Use
  Company Number: US-JNJFOC-20211128749

PATIENT
  Age: 64 Year
  Sex: Female
  Weight: 63.560 kg

DRUGS (1)
  1. SIMPONI ARIA [Suspect]
     Active Substance: GOLIMUMAB
     Indication: Psoriasis
     Route: 042
     Dates: start: 20210908

REACTIONS (2)
  - Psoriasis [Unknown]
  - Rash [Unknown]
